FAERS Safety Report 5004850-2 (Version None)
Quarter: 2006Q2

REPORT INFORMATION
  Report Type: 
  Country: None (occurrence: None)
  Receive Date: 20060517
  Receipt Date: 20050603
  Transmission Date: 20061013
  Serious: Yes (Other)
  Sender: FDA-Public Use
  Company Number: US-MERCK-0506USA00830

PATIENT
  Age: 68 Year
  Sex: Female
  Weight: 64 kg

DRUGS (8)
  1. VIOXX [Suspect]
     Indication: OSTEOARTHRITIS
     Route: 048
     Dates: start: 20010221, end: 20020415
  2. VIOXX [Suspect]
     Route: 048
     Dates: end: 20030107
  3. VIOXX [Suspect]
     Route: 048
     Dates: start: 20030107, end: 20030121
  4. VIOXX [Suspect]
     Route: 048
     Dates: start: 20020416, end: 20021003
  5. NUTRAVIEW [Concomitant]
     Route: 048
  6. REPLENEX [Concomitant]
     Route: 048
  7. MEL-VITA [Concomitant]
     Route: 048
  8. MELA-CAL [Concomitant]
     Route: 048

REACTIONS (10)
  - BLOOD PRESSURE INCREASED [None]
  - CEREBROVASCULAR ACCIDENT [None]
  - DRUG INEFFECTIVE [None]
  - FLUSHING [None]
  - HEADACHE [None]
  - HYPERTENSION [None]
  - INSOMNIA [None]
  - OEDEMA PERIPHERAL [None]
  - PRESCRIBED OVERDOSE [None]
  - RETINAL VEIN OCCLUSION [None]
